FAERS Safety Report 19464975 (Version 3)
Quarter: 2022Q1

REPORT INFORMATION
  Report Type: Spontaneous
  Country: GB (occurrence: GB)
  Receive Date: 20210626
  Receipt Date: 20220207
  Transmission Date: 20220423
  Serious: Yes (Life-Threatening, Hospitalization, Disabling, Other)
  Sender: FDA-Public Use
  Company Number: None

PATIENT
  Age: 19 Year
  Sex: Female
  Weight: 108 kg

DRUGS (1)
  1. SERTRALINE [Suspect]
     Active Substance: SERTRALINE HYDROCHLORIDE
     Indication: Mixed anxiety and depressive disorder
     Dosage: I THINK IT WAS THE LOWEST DOSE BUT NOT SURE
     Route: 048
     Dates: start: 201710, end: 20180219

REACTIONS (11)
  - Abnormal dreams [Recovered/Resolved with Sequelae]
  - Psychotic disorder [Recovered/Resolved with Sequelae]
  - Feeling abnormal [Recovered/Resolved with Sequelae]
  - Dissociation [Recovered/Resolved with Sequelae]
  - Overdose [Unknown]
  - Compulsive sexual behaviour [Unknown]
  - Yawning [Recovered/Resolved with Sequelae]
  - Suicide attempt [Unknown]
  - Paranoia [Recovered/Resolved with Sequelae]
  - Libido increased [Recovered/Resolved with Sequelae]
  - Petit mal epilepsy [Recovered/Resolved with Sequelae]

NARRATIVE: CASE EVENT DATE: 20171001
